FAERS Safety Report 13860200 (Version 13)
Quarter: 2017Q4

REPORT INFORMATION
  Report Type: Report from Study
  Country: US (occurrence: US)
  Receive Date: 20170811
  Receipt Date: 20171206
  Transmission Date: 20180320
  Serious: Yes (Other)
  Sender: FDA-Public Use
  Company Number: US-AMGEN-USASP2017119366

PATIENT
  Age: 64 Year
  Sex: Male

DRUGS (10)
  1. ENBREL [Suspect]
     Active Substance: ETANERCEPT
     Dosage: 50 MG, QWK
     Route: 065
     Dates: start: 2017, end: 2017
  2. PENNSAID [Concomitant]
     Active Substance: DICLOFENAC SODIUM
     Indication: PAIN
     Dosage: FORMULATION: LOTION
  3. ADVIL [Concomitant]
     Active Substance: IBUPROFEN
     Indication: RHEUMATOID ARTHRITIS
     Dosage: UNK
  4. ENBREL [Suspect]
     Active Substance: ETANERCEPT
     Dosage: 50 MG, QWK
     Route: 065
     Dates: start: 2017
  5. CORTISONE [Concomitant]
     Active Substance: CORTISONE\HYDROCORTISONE
     Indication: RHEUMATOID ARTHRITIS
     Dosage: UNK
  6. PENNSAID [Concomitant]
     Active Substance: DICLOFENAC SODIUM
     Indication: SWELLING
  7. POTASSIUM [Concomitant]
     Active Substance: POTASSIUM
     Indication: MUSCLE SPASMS
  8. ENBREL [Suspect]
     Active Substance: ETANERCEPT
     Indication: RHEUMATOID ARTHRITIS
     Dosage: 50 MG, QWK
     Route: 065
     Dates: start: 20170802, end: 2017
  9. ENBREL [Suspect]
     Active Substance: ETANERCEPT
     Indication: PSORIATIC ARTHROPATHY
     Dosage: 50 MG, QWK
     Route: 065
     Dates: start: 2017, end: 2017
  10. MELOXICAM. [Concomitant]
     Active Substance: MELOXICAM
     Indication: RHEUMATOID ARTHRITIS
     Dosage: 15 MG, UNK

REACTIONS (26)
  - Headache [Unknown]
  - Drug effect incomplete [Unknown]
  - Blood pressure increased [Unknown]
  - Asthenia [Recovered/Resolved]
  - Accidental exposure to product [Unknown]
  - Neck pain [Unknown]
  - Cardiac discomfort [Unknown]
  - Feeling abnormal [Unknown]
  - Muscle spasms [Unknown]
  - Nail disorder [Unknown]
  - Peripheral swelling [Unknown]
  - Injection site pain [Unknown]
  - Gait disturbance [Unknown]
  - Injection site swelling [Unknown]
  - Contusion [Unknown]
  - Dyspnoea [Recovering/Resolving]
  - Blood iron abnormal [Unknown]
  - Dysgeusia [Unknown]
  - Loss of control of legs [Recovered/Resolved]
  - Oropharyngeal pain [Unknown]
  - Pyrexia [Unknown]
  - False positive investigation result [Unknown]
  - Stress [Unknown]
  - Back pain [Unknown]
  - Rheumatoid arthritis [Recovering/Resolving]
  - Muscle disorder [Unknown]

NARRATIVE: CASE EVENT DATE: 2017
